FAERS Safety Report 6886151-0 (Version None)
Quarter: 2010Q3

REPORT INFORMATION
  Report Type: 
  Country: None (occurrence: None)
  Receive Date: 20100729
  Receipt Date: 20090327
  Transmission Date: 20110219
  Serious: No
  Sender: FDA-Public Use
  Company Number: US-PFIZER INC-2009190763

PATIENT
  Sex: Male
  Weight: 109 kg

DRUGS (1)
  1. CELEBREX [Suspect]
     Indication: ARTHRITIS
     Dosage: 20 MG, 2X/DAY
     Dates: start: 20090323

REACTIONS (1)
  - CONSTIPATION [None]
